FAERS Safety Report 4754804-6 (Version None)
Quarter: 2005Q3

REPORT INFORMATION
  Report Type: 
  Country: None (occurrence: None)
  Receive Date: 20050825
  Receipt Date: 20050804
  Transmission Date: 20060218
  Serious: Yes (Death)
  Sender: FDA-Public Use
  Company Number: CERZ-10974

PATIENT
  Age: 33 Month
  Sex: Male
  Weight: 10 kg

DRUGS (1)
  1. CEREZYME [Suspect]
     Indication: GAUCHER'S DISEASE
     Dosage: 60 U/KG Q2WKS IV
     Route: 042
     Dates: start: 20020304, end: 20030101

REACTIONS (6)
  - APNOEA [None]
  - CHOKING [None]
  - CONVULSION [None]
  - DISEASE PROGRESSION [None]
  - GAUCHER'S DISEASE [None]
  - RESPIRATORY FAILURE [None]
